FAERS Safety Report 14268062 (Version 6)
Quarter: 2018Q1

REPORT INFORMATION
  Report Type: Spontaneous
  Country: US (occurrence: US)
  Receive Date: 20171211
  Receipt Date: 20180316
  Transmission Date: 20180508
  Serious: Yes (Other)
  Sender: FDA-Public Use
  Company Number: PHEH2017US039652

PATIENT
  Age: 82 Year
  Sex: Female
  Weight: 63.5 kg

DRUGS (1)
  1. TRIESENCE [Suspect]
     Active Substance: TRIAMCINOLONE ACETONIDE
     Indication: CYSTOID MACULAR OEDEMA
     Dosage: 4 MG, IN 0.1CC ONCE/SINGLE
     Route: 031
     Dates: start: 20171117

REACTIONS (8)
  - Ocular hyperaemia [Unknown]
  - Product quality issue [Unknown]
  - Eye inflammation [Unknown]
  - Retinal detachment [Unknown]
  - Vision blurred [Unknown]
  - Photophobia [Unknown]
  - Endophthalmitis [Recovered/Resolved]
  - Intraocular pressure increased [Unknown]

NARRATIVE: CASE EVENT DATE: 20171120
